FAERS Safety Report 15192021 (Version 1)
Quarter: 2018Q3

REPORT INFORMATION
  Report Type: Spontaneous
  Country: DE (occurrence: DE)
  Receive Date: 20180724
  Receipt Date: 20180724
  Transmission Date: 20181010
  Serious: Yes (Hospitalization, Other)
  Sender: FDA-Public Use
  Company Number: PHHY2018DE051241

PATIENT
  Age: 64 Year
  Sex: Male
  Weight: 67 kg

DRUGS (7)
  1. OXALIPLATIN. [Suspect]
     Active Substance: OXALIPLATIN
     Indication: COLORECTAL CANCER METASTATIC
     Dosage: 157 MG, UNK
     Route: 042
     Dates: start: 20180309
  2. FOLINIC ACID [Suspect]
     Active Substance: LEUCOVORIN
     Dosage: 740 MG, UNK
     Route: 042
     Dates: start: 20180411
  3. 5?FLUOROURACIL [Suspect]
     Active Substance: FLUOROURACIL
     Indication: COLORECTAL CANCER METASTATIC
     Dosage: 5180 MG, UNK
     Route: 042
     Dates: start: 20180309
  4. PANITUMUMAB [Suspect]
     Active Substance: PANITUMUMAB
     Indication: COLORECTAL CANCER METASTATIC
     Dosage: 423 MG, UNK
     Route: 042
     Dates: start: 20180309, end: 20180425
  5. 5?FLUOROURACIL [Suspect]
     Active Substance: FLUOROURACIL
     Dosage: 5180 MG, UNK
     Route: 042
     Dates: start: 20180411
  6. OXALIPLATIN. [Suspect]
     Active Substance: OXALIPLATIN
     Dosage: 157 MG, UNK
     Route: 042
     Dates: start: 20180411
  7. FOLINIC ACID [Suspect]
     Active Substance: LEUCOVORIN
     Indication: COLORECTAL CANCER METASTATIC
     Dosage: 740 MG, UNK
     Route: 042
     Dates: start: 20180309

REACTIONS (2)
  - Acute kidney injury [Recovered/Resolved]
  - Diarrhoea [Recovered/Resolved]

NARRATIVE: CASE EVENT DATE: 20180425
